FAERS Safety Report 16551481 (Version 1)
Quarter: 2019Q3

REPORT INFORMATION
  Report Type: Spontaneous
  Country: GB (occurrence: GB)
  Receive Date: 20190710
  Receipt Date: 20190710
  Transmission Date: 20191004
  Serious: Yes (Hospitalization)
  Sender: FDA-Public Use
  Company Number: GB-ACCORD-137729

PATIENT
  Age: 48 Year
  Sex: Female

DRUGS (14)
  1. DOCETAXEL. [Suspect]
     Active Substance: DOCETAXEL
     Indication: BREAST CANCER
     Dosage: AWAITING DOCUMENTATION FROM TERTIARY PROVIDER
     Route: 042
     Dates: start: 20190515, end: 20190602
  2. FILGRASTIM [Concomitant]
     Active Substance: FILGRASTIM
  3. CYCLIZINE [Concomitant]
     Active Substance: CYCLIZINE
  4. AMLODIPINE [Concomitant]
     Active Substance: AMLODIPINE BESYLATE
  5. RAMIPRIL. [Concomitant]
     Active Substance: RAMIPRIL
  6. FLUOXETINE [Concomitant]
     Active Substance: FLUOXETINE HYDROCHLORIDE
  7. ENOXAPARIN [Concomitant]
     Active Substance: ENOXAPARIN
  8. MORPHINE [Concomitant]
     Active Substance: MORPHINE
  9. PARACETAMOL [Concomitant]
     Active Substance: ACETAMINOPHEN
  10. QVAR [Concomitant]
     Active Substance: BECLOMETHASONE DIPROPIONATE
  11. CANESTEN HC [Concomitant]
     Active Substance: CLOTRIMAZOLE\HYDROCORTISONE
  12. LEVOTHYROXINE. [Concomitant]
     Active Substance: LEVOTHYROXINE
  13. SALBUTAMOL [Concomitant]
     Active Substance: ALBUTEROL
  14. CO-AMOXICLAV [Concomitant]
     Active Substance: AMOXICILLIN\CLAVULANATE POTASSIUM

REACTIONS (4)
  - Neutropenic sepsis [Recovering/Resolving]
  - Pain in extremity [Unknown]
  - Rash [Unknown]
  - Pyrexia [Unknown]

NARRATIVE: CASE EVENT DATE: 20190602
